FAERS Safety Report 8808444 (Version 1)
Quarter: 2012Q4

REPORT INFORMATION
  Report Type: 
  Country: US (occurrence: US)
  Receive Date: 20120926
  Receipt Date: 20120926
  Transmission Date: 20130627
  Serious: No
  Sender: FDA-Public Use
  Company Number: US-PFIZER INC-2012234670

PATIENT
  Sex: Female

DRUGS (1)
  1. ZITHROMAX [Suspect]
     Dosage: UNK
     Dates: start: 20110505, end: 2011

REACTIONS (4)
  - Gastrointestinal disorder [Unknown]
  - Flatulence [Unknown]
  - Abdominal pain [Unknown]
  - Irritability [Unknown]
